FAERS Safety Report 9169999 (Version 1)
Quarter: 2013Q1

REPORT INFORMATION
  Report Type: Spontaneous
  Country: US (occurrence: None)
  Receive Date: 20130314
  Receipt Date: 20130314
  Transmission Date: 20140127
  Serious: Yes (Life-Threatening)
  Sender: FDA-Public Use
  Company Number: None

PATIENT
  Age: 82 Year
  Sex: Male
  Weight: 97 kg

DRUGS (11)
  1. FUROSEMIDE [Suspect]
     Indication: HYPERTENSION
     Dosage: HOME DOSE
     Route: 048
  2. FUROSEMIDE [Suspect]
     Indication: CORONARY ARTERY DISEASE
     Dosage: HOME DOSE
     Route: 048
  3. CARVEDILOL [Suspect]
     Indication: HYPERTENSION
     Dosage: HOME DOSE
     Route: 048
  4. CARVEDILOL [Suspect]
     Indication: CORONARY ARTERY DISEASE
     Dosage: HOME DOSE
     Route: 048
  5. LOSARTAN [Concomitant]
  6. SIMVASTATIN [Concomitant]
  7. ASPIRIN [Concomitant]
  8. FENOFIBRATE [Concomitant]
  9. DOCUSATE CALCIUM [Concomitant]
  10. INSULIN NPH [Concomitant]
  11. SLIDING SCALE REGULAR INSULIN [Concomitant]

REACTIONS (5)
  - Cerebrovascular accident [None]
  - Unresponsive to stimuli [None]
  - Bradycardia [None]
  - Hypotension [None]
  - Respiratory rate decreased [None]
